FAERS Safety Report 16704312 (Version 1)
Quarter: 2019Q3

REPORT INFORMATION
  Report Type: Spontaneous
  Country: US (occurrence: US)
  Receive Date: 20190814
  Receipt Date: 20190814
  Transmission Date: 20191004
  Serious: Yes (Other)
  Sender: FDA-Public Use
  Company Number: PHHY2019US184977

PATIENT
  Age: 66 Year
  Sex: Female

DRUGS (5)
  1. DOXORUBICINE [Suspect]
     Active Substance: DOXORUBICIN
     Indication: THYROID B-CELL LYMPHOMA
     Dosage: 6 CYCLE
     Route: 065
  2. RITUXIMAB. [Suspect]
     Active Substance: RITUXIMAB
     Indication: THYROID B-CELL LYMPHOMA
     Dosage: 6 CYCLE
     Route: 065
  3. CYCLOPHOSPHAMIDE. [Suspect]
     Active Substance: CYCLOPHOSPHAMIDE
     Indication: THYROID B-CELL LYMPHOMA
     Dosage: 6 CYCLE
     Route: 065
  4. VINCRISTINE [Suspect]
     Active Substance: VINCRISTINE
     Indication: THYROID B-CELL LYMPHOMA
     Dosage: 6 CYCLE
     Route: 065
  5. PREDNISONE. [Suspect]
     Active Substance: PREDNISONE
     Indication: THYROID B-CELL LYMPHOMA
     Dosage: 6 CYCLE
     Route: 065

REACTIONS (4)
  - Tremor [Unknown]
  - Basedow^s disease [Recovered/Resolved]
  - Fatigue [Unknown]
  - Weight decreased [Unknown]
